FAERS Safety Report 7106261-2 (Version None)
Quarter: 2010Q4

REPORT INFORMATION
  Report Type: 
  Country: None (occurrence: None)
  Receive Date: 20101116
  Receipt Date: 20101103
  Transmission Date: 20110411
  Serious: Yes (Other)
  Sender: FDA-Public Use
  Company Number: US-ELI_LILLY_AND_COMPANY-US201011001622

PATIENT
  Sex: Female

DRUGS (4)
  1. CYMBALTA [Suspect]
     Indication: NEURALGIA
  2. LYRICA [Concomitant]
     Indication: NEURALGIA
     Dosage: 75 MG, 2/D
  3. LYRICA [Concomitant]
     Dosage: 75 MG, EACH MORNING
  4. LYRICA [Concomitant]
     Dosage: 150 MG, EACH EVENING

REACTIONS (1)
  - UNRESPONSIVE TO STIMULI [None]
